FAERS Safety Report 25771688 (Version 3)
Quarter: 2025Q3

REPORT INFORMATION
  Report Type: Spontaneous
  Country: US (occurrence: US)
  Receive Date: 20250908
  Receipt Date: 20250926
  Transmission Date: 20251020
  Serious: No
  Sender: ABBVIE
  Company Number: US-ABBVIE-6443523

PATIENT
  Sex: Female

DRUGS (3)
  1. HUMIRA [Suspect]
     Active Substance: ADALIMUMAB
     Indication: Raynaud^s phenomenon
     Route: 058
     Dates: start: 2024
  2. COVID-19 vaccine [Concomitant]
     Indication: COVID-19 immunisation
  3. INFLUENZA VIRUS VACCINE [Concomitant]
     Active Substance: INFLUENZA VIRUS VACCINE
     Indication: Influenza immunisation

REACTIONS (3)
  - Excessive skin [Unknown]
  - Off label use [Unknown]
  - Weight decreased [Unknown]
